FAERS Safety Report 5602747-8 (Version None)
Quarter: 2008Q1

REPORT INFORMATION
  Report Type: 
  Country: None (occurrence: None)
  Receive Date: 20080125
  Receipt Date: 20080102
  Transmission Date: 20080703
  Serious: No
  Sender: FDA-Public Use
  Company Number: A0694513A

PATIENT
  Age: 77 Year
  Sex: Female

DRUGS (7)
  1. HYCAMTIN [Suspect]
     Indication: PERITONEAL CARCINOMA
     Dosage: 3MGM2 WEEKLY
     Route: 042
     Dates: start: 20071011
  2. ZOCOR [Concomitant]
  3. PRILOSEC [Concomitant]
  4. ASPIRIN [Concomitant]
  5. ASCORBIC ACID [Concomitant]
  6. CALCIUM GLUCONATE [Concomitant]
  7. MULTI-VITAMIN [Concomitant]

REACTIONS (4)
  - BLISTER [None]
  - ERYTHEMA [None]
  - LATEX ALLERGY [None]
  - PALMAR ERYTHEMA [None]
